FAERS Safety Report 14378760 (Version 6)
Quarter: 2018Q3

REPORT INFORMATION
  Report Type: Spontaneous
  Country: FR (occurrence: FR)
  Receive Date: 20180112
  Receipt Date: 20180921
  Transmission Date: 20181010
  Serious: Yes (Other)
  Sender: FDA-Public Use
  Company Number: FR-MERCK KGAA-2039991

PATIENT
  Age: 43 Year
  Sex: Female

DRUGS (2)
  1. EUTHYROX [Suspect]
     Active Substance: LEVOTHYROXINE SODIUM
     Indication: THYROID DISORDER
     Dates: start: 20170510, end: 201711
  2. TRAMADOL. [Concomitant]
     Active Substance: TRAMADOL
     Dates: start: 20161221

REACTIONS (25)
  - Asthenia [Recovered/Resolved]
  - Impaired driving ability [None]
  - Blood thyroid stimulating hormone decreased [None]
  - Sleep disorder [Recovered/Resolved]
  - Decreased activity [None]
  - Sciatica [None]
  - Insomnia [Recovered/Resolved]
  - Limb discomfort [Recovered/Resolved]
  - Psychopathic personality [None]
  - Hair colour changes [None]
  - Back pain [None]
  - Quality of life decreased [Recovered/Resolved]
  - Irritability [Recovered/Resolved]
  - Impatience [None]
  - Psychomotor hyperactivity [None]
  - Fatigue [Recovered/Resolved]
  - Loss of personal independence in daily activities [Recovered/Resolved]
  - Disturbance in attention [Recovered/Resolved]
  - Pain [Recovered/Resolved]
  - Unevaluable event [None]
  - Weight increased [None]
  - Fibromyalgia [None]
  - Myalgia [Recovered/Resolved]
  - Vertigo [Recovered/Resolved]
  - Pain in extremity [Recovered/Resolved]

NARRATIVE: CASE EVENT DATE: 2017
